FAERS Safety Report 4408605-9 (Version None)
Quarter: 2004Q3

REPORT INFORMATION
  Report Type: 
  Country: None (occurrence: None)
  Receive Date: 20040723
  Receipt Date: 20040708
  Transmission Date: 20050211
  Serious: Yes (Congenital Anomaly)
  Sender: FDA-Public Use
  Company Number: 2004-UK-0059UK

PATIENT

DRUGS (3)
  1. NEVIRAPINE (00015/0215/A) (NEVIRAPINE) [Suspect]
     Indication: HIV INFECTION
     Dosage: 400 MG (200 MG) IU
     Route: 015
     Dates: start: 20000127
  2. VIDEX [Suspect]
     Dosage: 400 MG IU
     Route: 015
     Dates: start: 20000101
  3. ZIDOVUDINE [Suspect]
     Indication: HIV INFECTION
     Dosage: 500 MG IU
     Route: 015
     Dates: start: 20000101

REACTIONS (3)
  - CONGENITAL CENTRAL NERVOUS SYSTEM ANOMALY [None]
  - DRUG EXPOSURE DURING PREGNANCY [None]
  - PULMONARY HYPOPLASIA [None]
